FAERS Safety Report 9822782 (Version 2)
Quarter: 2014Q1

REPORT INFORMATION
  Report Type: Spontaneous
  Country: US (occurrence: US)
  Receive Date: 20140116
  Receipt Date: 20140212
  Transmission Date: 20141002
  Serious: No
  Sender: FDA-Public Use
  Company Number: US-009507513-1401USA004781

PATIENT
  Age: 27 Year
  Sex: Female
  Weight: 118.4 kg

DRUGS (2)
  1. NEXPLANON [Suspect]
     Dosage: 1ROD FOR 3YEARS
     Route: 059
     Dates: start: 20140109, end: 20140109
  2. NEXPLANON [Suspect]
     Dosage: 1 ROD FOR 3 YEARS
     Route: 059
     Dates: start: 20140109

REACTIONS (4)
  - Device deployment issue [Recovered/Resolved]
  - Device difficult to use [Recovered/Resolved]
  - Product quality issue [Unknown]
  - No adverse event [Unknown]
